FAERS Safety Report 6544515-9 (Version None)
Quarter: 2010Q1

REPORT INFORMATION
  Report Type: 
  Country: None (occurrence: None)
  Receive Date: 20100120
  Receipt Date: 20100120
  Transmission Date: 20100710
  Serious: Yes (Hospitalization)
  Sender: FDA-Public Use
  Company Number: None

PATIENT
  Age: 41 Year
  Sex: Male
  Weight: 71.2 kg

DRUGS (10)
  1. VIREAD [Suspect]
     Indication: HIV INFECTION
     Dosage: 300MG HS PO
     Route: 048
     Dates: start: 20090901, end: 20091231
  2. ABACAVIR [Concomitant]
  3. ATOVAQUONE [Concomitant]
  4. BUMEX [Concomitant]
  5. DULCOLAX [Concomitant]
  6. BUPROPION [Concomitant]
  7. COLACE [Concomitant]
  8. NEXIUM [Concomitant]
  9. DIFLUCAN [Concomitant]
  10. KALETRA [Concomitant]

REACTIONS (1)
  - RENAL FAILURE [None]
